FAERS Safety Report 6370697-8 (Version None)
Quarter: 2009Q3

REPORT INFORMATION
  Report Type: 
  Country: None (occurrence: None)
  Receive Date: 20090923
  Receipt Date: 20070504
  Transmission Date: 20100115
  Serious: Yes (Hospitalization)
  Sender: FDA-Public Use
  Company Number: US-ASTRAZENECA-2006UW26118

PATIENT
  Age: 42 Year
  Sex: Male
  Weight: 101.2 kg

DRUGS (10)
  1. SEROQUEL [Suspect]
     Indication: BIPOLAR DISORDER
     Route: 048
     Dates: start: 20050101
  2. SEROQUEL [Suspect]
     Dosage: 50-300 MG
     Route: 048
     Dates: start: 20050819
  3. AMBINE CR [Concomitant]
     Dosage: 12.5 MG DISPENSED
     Dates: start: 20051115
  4. NIFEDIPINE [Concomitant]
     Dosage: 60 MG DISPENSED
     Dates: start: 20051212
  5. PREDNISONE [Concomitant]
     Dosage: 5-20 MG DISPENSED
     Dates: start: 20031004
  6. LISINOPRIL [Concomitant]
     Dosage: 10-20 MG DISPENSED
     Dates: start: 20020727
  7. ALPRAZOLAM [Concomitant]
     Dosage: 0.25-0.5 MG
     Dates: start: 20030110
  8. HYDROOXYZINE HCL [Concomitant]
     Dosage: 10-50 MG
     Dates: start: 20030908
  9. ZYRTEC [Concomitant]
     Dosage: 10 MG DISPENSED
     Dates: start: 20030925
  10. DOXEPIN HCL [Concomitant]
     Dosage: 25 MG DISPENSED
     Dates: start: 20040628

REACTIONS (4)
  - BLOOD CHOLESTEROL INCREASED [None]
  - DIABETES MELLITUS [None]
  - DIABETES MELLITUS INADEQUATE CONTROL [None]
  - TYPE 2 DIABETES MELLITUS [None]
